FAERS Safety Report 23491865 (Version 3)
Quarter: 2024Q1

REPORT INFORMATION
  Report Type: Report from Study
  Country: MX (occurrence: MX)
  Receive Date: 20240207
  Receipt Date: 20240301
  Transmission Date: 20240409
  Serious: Yes (Hospitalization, Other)
  Sender: FDA-Public Use
  Company Number: MX-002147023-NVSC2024MX026298

PATIENT
  Age: 54 Year
  Sex: Female

DRUGS (1)
  1. TASIGNA [Suspect]
     Active Substance: NILOTINIB
     Indication: Chronic myeloid leukaemia
     Dosage: 2 DOSAGE FORM, QD (ONCE DAILY) ( SHE TAKES 2 IN THE MORNING)
     Route: 048

REACTIONS (10)
  - Peripheral vein thrombosis [Unknown]
  - Cardiac disorder [Not Recovered/Not Resolved]
  - Chronic myeloid leukaemia recurrent [Unknown]
  - Abdominal discomfort [Unknown]
  - Arterial disorder [Unknown]
  - Pain in extremity [Unknown]
  - Heart rate decreased [Not Recovered/Not Resolved]
  - Cardiovascular insufficiency [Unknown]
  - Embolism [Unknown]
  - Ill-defined disorder [Unknown]

NARRATIVE: CASE EVENT DATE: 20230501
